FAERS Safety Report 4886222-4 (Version None)
Quarter: 2006Q1

REPORT INFORMATION
  Report Type: 
  Country: None (occurrence: None)
  Receive Date: 20060120
  Receipt Date: 20060110
  Transmission Date: 20060701
  Serious: Yes (Other)
  Sender: FDA-Public Use
  Company Number: AU-GLAXOSMITHKLINE-B0406054A

PATIENT
  Age: 55 Year
  Sex: Female

DRUGS (1)
  1. CARTIA XT [Suspect]
     Indication: ANTICOAGULANT THERAPY
     Dosage: 1TAB PER DAY
     Route: 048
     Dates: start: 20060106

REACTIONS (9)
  - ASTHENIA [None]
  - DIZZINESS [None]
  - FEELING ABNORMAL [None]
  - HYPOAESTHESIA [None]
  - MALAISE [None]
  - NAUSEA [None]
  - SENSORY DISTURBANCE [None]
  - TREMOR [None]
  - VISUAL ACUITY REDUCED [None]
